FAERS Safety Report 7157600-8 (Version None)
Quarter: 2010Q4

REPORT INFORMATION
  Report Type: 
  Country: None (occurrence: None)
  Receive Date: 20101214
  Receipt Date: 20100226
  Transmission Date: 20110411
  Serious: No
  Sender: FDA-Public Use
  Company Number: US-ASTRAZENECA-2010SE08860

PATIENT
  Age: 74 Year
  Sex: Female
  Weight: 88.5 kg

DRUGS (9)
  1. CRESTOR [Suspect]
     Route: 048
     Dates: start: 20100223
  2. DILANTIN [Concomitant]
  3. PHENOBARBITAL [Concomitant]
  4. THEOPHYLLINE [Concomitant]
  5. LASIX [Concomitant]
  6. DITROPAN [Concomitant]
  7. ALDACTONE [Concomitant]
  8. MACROBID [Concomitant]
  9. POTASSIUM CHLORIDE [Concomitant]

REACTIONS (2)
  - EYE PAIN [None]
  - MYALGIA [None]
